FAERS Safety Report 17240976 (Version 1)
Quarter: 2020Q1

REPORT INFORMATION
  Report Type: Spontaneous
  Country: US (occurrence: US)
  Receive Date: 20200106
  Receipt Date: 20200106
  Transmission Date: 20200409
  Serious: No
  Sender: FDA-Public Use
  Company Number: None

PATIENT
  Age: 27 Year
  Sex: Female
  Weight: 53.1 kg

DRUGS (6)
  1. MELATONIN 3 MG [Concomitant]
  2. IMIPRAINE 25 MG [Concomitant]
  3. SPIRONOLACTONE 50 MG [Concomitant]
     Active Substance: SPIRONOLACTONE
  4. WOMEN^S DAILY MULTIVITAMIN [Concomitant]
  5. ALLEGRA ALLERGY [Concomitant]
     Active Substance: FEXOFENADINE HYDROCHLORIDE
  6. AIMOVIG [Suspect]
     Active Substance: ERENUMAB-AOOE
     Indication: MIGRAINE
     Dosage: ?          QUANTITY:1 INJECTION(S);OTHER FREQUENCY:MONTHLY;?
     Route: 030
     Dates: start: 20191011, end: 20191218

REACTIONS (11)
  - Injection site bruising [None]
  - Feeling abnormal [None]
  - Thinking abnormal [None]
  - Abdominal discomfort [None]
  - Dyspepsia [None]
  - Anxiety [None]
  - Injection site urticaria [None]
  - Poverty of speech [None]
  - Injection site pruritus [None]
  - Disturbance in attention [None]
  - Abdominal distension [None]

NARRATIVE: CASE EVENT DATE: 20191217
